FAERS Safety Report 4707374-2 (Version None)
Quarter: 2005Q3

REPORT INFORMATION
  Report Type: 
  Country: None (occurrence: None)
  Receive Date: 20050701
  Receipt Date: 20050701
  Transmission Date: 20060218
  Serious: Yes (Hospitalization, Other)
  Sender: FDA-Public Use
  Company Number: None

PATIENT
  Sex: Male
  Weight: 71 kg

DRUGS (5)
  1. DAUNOMYCIN [Suspect]
     Indication: ACUTE LYMPHOCYTIC LEUKAEMIA
     Dosage: 60 MG/M2 IVP ON DAYS 1,8,15, AND 22
     Route: 042
     Dates: start: 20050514, end: 20050604
  2. VINCRISTINE SULFATE [Suspect]
     Dosage: 1.4 MG/M2 IVP ON DAYS 1,8,15,AND 22. NOTE: MAXIMUM DOSE 2MG
     Route: 042
     Dates: end: 20050606
  3. PREDNISONE TAB [Suspect]
     Dosage: 60 MG/M2 PO QD FOR 28 DAYS
     Route: 048
     Dates: end: 20050610
  4. ELSPAR [Suspect]
     Dosage: 10000 UNIT/M2 IV OVER 30 MIN QD ON DAYS 17-28
     Route: 042
     Dates: end: 20050610
  5. METHOTREXATE [Suspect]
     Dosage: 12.5 MG IT ON DAY 15 ONLY UNLESS PT. RECEIVED TREATMENT FOR CNS LEUKEMIA
     Route: 037

REACTIONS (2)
  - ANXIETY [None]
  - DEPRESSION [None]
